FAERS Safety Report 5145051-7 (Version None)
Quarter: 2006Q4

REPORT INFORMATION
  Report Type: 
  Country: None (occurrence: None)
  Receive Date: 20061107
  Receipt Date: 20061101
  Transmission Date: 20070319
  Serious: Yes (Death, Hospitalization)
  Sender: FDA-Public Use
  Company Number: 468066

PATIENT
  Age: 70 Year
  Sex: Male

DRUGS (10)
  1. CARVEDILOL [Suspect]
     Indication: CARDIAC FAILURE CHRONIC
     Route: 048
     Dates: start: 20040818, end: 20050711
  2. BLOPRESS [Concomitant]
     Dates: start: 20040715, end: 20050711
  3. ASPIRIN [Concomitant]
     Dates: start: 20040707, end: 20050711
  4. LASIX [Concomitant]
     Dates: start: 20040707, end: 20050711
  5. ALDACTONE [Concomitant]
     Dates: start: 20050719, end: 20060711
  6. DIGOXIN [Concomitant]
     Dates: start: 20040719, end: 20050711
  7. ALLOPURINOL [Concomitant]
     Dates: start: 20040308, end: 20050711
  8. KOLANTYL [Concomitant]
     Dates: start: 20040707, end: 20050711
  9. GASTER D [Concomitant]
     Dates: start: 20040718, end: 20050711
  10. URALYT [Concomitant]
     Dates: start: 20040308, end: 20050706

REACTIONS (3)
  - HYPOTENSION [None]
  - SHOCK [None]
  - SURGERY [None]
